FAERS Safety Report 18381588 (Version 2)
Quarter: 2020Q4

REPORT INFORMATION
  Report Type: Report from Study
  Country: GB (occurrence: GB)
  Receive Date: 20201014
  Receipt Date: 20201020
  Transmission Date: 20210114
  Serious: Yes (Death, Other)
  Sender: FDA-Public Use
  Company Number: GB-AMGEN-GBRCT2014016376

PATIENT
  Age: 84 Year
  Sex: Female

DRUGS (1)
  1. ETANERCEPT [Suspect]
     Active Substance: ETANERCEPT
     Indication: RHEUMATOID ARTHRITIS
     Dosage: 25 MILLIGRAM
     Route: 065
     Dates: start: 20020315

REACTIONS (5)
  - Disseminated tuberculosis [Fatal]
  - Gastrointestinal haemorrhage [Fatal]
  - Deep vein thrombosis [Fatal]
  - Pneumonia [Fatal]
  - Pulmonary embolism [Fatal]
